FAERS Safety Report 24673803 (Version 3)
Quarter: 2025Q3

REPORT INFORMATION
  Report Type: Report from Study
  Country: US (occurrence: US)
  Receive Date: 20241128
  Receipt Date: 20250810
  Transmission Date: 20251021
  Serious: Yes (Other)
  Sender: ALEXION PHARMACEUTICALS
  Company Number: US-ASTRAZENECA-202411USA016189US

PATIENT
  Age: 57 Year
  Sex: Female

DRUGS (1)
  1. ANIFROLUMAB [Suspect]
     Active Substance: ANIFROLUMAB
     Indication: Systemic lupus erythematosus
     Dosage: 300 MILLIGRAM, Q4W
     Dates: start: 202407

REACTIONS (3)
  - Myocardial infarction [Unknown]
  - Mental disorder [Unknown]
  - Malaise [Unknown]

NARRATIVE: CASE EVENT DATE: 20241114
